FAERS Safety Report 21928070 (Version 1)
Quarter: 2023Q1

REPORT INFORMATION
  Report Type: Spontaneous
  Country: US (occurrence: US)
  Receive Date: 20230130
  Receipt Date: 20230130
  Transmission Date: 20230417
  Serious: No
  Sender: FDA-Public Use
  Company Number: US-INSUD PHARMA-2301US00427

PATIENT

DRUGS (1)
  1. FULVESTRANT [Suspect]
     Active Substance: FULVESTRANT
     Indication: Product used for unknown indication
     Dosage: RECEIVED ABOUT ^ONE THIRD^ OF THE INJECTION
     Route: 030
     Dates: start: 20221215, end: 20221215

REACTIONS (1)
  - Administration related reaction [Unknown]

NARRATIVE: CASE EVENT DATE: 20221215
